FAERS Safety Report 7190416-5 (Version None)
Quarter: 2010Q4

REPORT INFORMATION
  Report Type: 
  Country: None (occurrence: None)
  Receive Date: 20101223
  Receipt Date: 20101213
  Transmission Date: 20110411
  Serious: Yes (Other)
  Sender: FDA-Public Use
  Company Number: US-ELI_LILLY_AND_COMPANY-US201012004120

PATIENT
  Sex: Female

DRUGS (2)
  1. HUMALOG [Suspect]
     Indication: DIABETES MELLITUS
     Dosage: UNK, 3/D
     Dates: start: 20000101
  2. LANTUS [Concomitant]

REACTIONS (3)
  - BLINDNESS [None]
  - DIABETIC RETINOPATHY [None]
  - INCORRECT DOSE ADMINISTERED [None]
